FAERS Safety Report 4982056-0 (Version None)
Quarter: 2006Q2

REPORT INFORMATION
  Report Type: 
  Country: None (occurrence: None)
  Receive Date: 20060425
  Receipt Date: 20060216
  Transmission Date: 20061013
  Serious: Yes (Hospitalization)
  Sender: FDA-Public Use
  Company Number: US-MERCK-0602USA04641

PATIENT
  Age: 69 Year
  Sex: Female
  Weight: 55 kg

DRUGS (55)
  1. BIAXIN [Concomitant]
     Route: 065
  2. CEFUROXIME [Concomitant]
     Route: 065
  3. CIPROFLOXACIN HCL [Concomitant]
     Route: 065
  4. COREG [Concomitant]
     Indication: HYPERTENSION
     Route: 065
     Dates: start: 20020607, end: 20040525
  5. COREG [Concomitant]
     Indication: CARDIAC FAILURE CONGESTIVE
     Route: 065
     Dates: start: 20020607, end: 20040525
  6. COZAAR [Concomitant]
     Route: 048
     Dates: start: 20030126, end: 20040513
  7. DIFLUCAN [Concomitant]
     Route: 065
  8. DIGITEK [Concomitant]
     Indication: CARDIAC FAILURE CONGESTIVE
     Route: 065
     Dates: start: 20020319, end: 20020514
  9. DIGITEK [Concomitant]
     Indication: ATRIAL FIBRILLATION
     Route: 065
     Dates: start: 20020319, end: 20020514
  10. DIOVAN [Concomitant]
     Route: 065
  11. DOXAZOSIN MESYLATE [Concomitant]
     Indication: HYPERTENSION
     Route: 065
  12. FUROSEMIDE [Concomitant]
     Indication: OEDEMA
     Route: 048
     Dates: start: 20020319, end: 20050112
  13. LAMISIL [Concomitant]
     Indication: NAIL INFECTION
     Route: 065
  14. LORAZEPAM [Concomitant]
     Route: 065
  15. LOPRESSOR [Concomitant]
     Indication: HYPERTENSION
     Route: 065
     Dates: start: 20020319, end: 20020514
  16. MECLIZINE [Concomitant]
     Indication: MOTION SICKNESS
     Route: 065
  17. MECLIZINE [Concomitant]
     Indication: VERTIGO
     Route: 065
  18. PREMARIN [Concomitant]
     Indication: GENITAL PRURITUS FEMALE
     Route: 065
  19. PREMARIN [Concomitant]
     Indication: VAGINAL BURNING SENSATION
     Route: 065
  20. PRILOSEC [Concomitant]
     Route: 048
  21. PRINIVIL [Concomitant]
     Indication: HYPERTENSION
     Route: 048
     Dates: start: 20020319, end: 20041110
  22. PROMETHAZINE [Concomitant]
     Route: 065
  23. PROPOXYPHENE HYDROCHLORIDE [Concomitant]
     Indication: PAIN
     Route: 048
     Dates: start: 20000106, end: 20041218
  24. SPIRONOLACTONE [Concomitant]
     Indication: OEDEMA
     Route: 048
     Dates: start: 19981124, end: 20050129
  25. SPIRONOLACTONE [Concomitant]
     Indication: HYPERTENSION
     Route: 048
     Dates: start: 19981124, end: 20050129
  26. TOBRADEX [Concomitant]
     Route: 065
  27. TYLENOL ARTHRITIS EXTENDED RELIEF [Concomitant]
     Route: 048
     Dates: start: 20020301
  28. ULTRACET [Concomitant]
     Route: 065
  29. ZITHROMAX [Concomitant]
     Route: 065
  30. ZOCOR [Concomitant]
     Indication: BLOOD CHOLESTEROL INCREASED
     Route: 048
     Dates: start: 20030213, end: 20040429
  31. ZOLOFT [Concomitant]
     Route: 065
     Dates: start: 20011002, end: 20011231
  32. ZYRTEC [Concomitant]
     Indication: HYPERSENSITIVITY
     Route: 065
  33. HYDROCODONE BITARTRATE [Concomitant]
     Indication: PAIN
     Route: 065
     Dates: start: 19981130, end: 20050228
  34. CYCLOBENZAPRINE HYDROCHLORIDE [Concomitant]
     Indication: ARTHRITIS
     Route: 048
     Dates: start: 19990217, end: 20040516
  35. NASONEX [Concomitant]
     Indication: HYPERSENSITIVITY
     Route: 065
  36. NITROGLYCERIN [Concomitant]
     Indication: CHEST PAIN
     Route: 048
  37. NORVASC [Concomitant]
     Indication: HYPERTENSION
     Route: 065
     Dates: start: 19981222, end: 20050101
  38. NYSTATIN [Concomitant]
     Indication: INFECTION
     Route: 065
  39. ORPHENADRINE [Concomitant]
     Indication: MUSCLE SPASMS
     Route: 065
  40. OXYCODONE [Concomitant]
     Indication: PAIN
     Route: 065
     Dates: start: 20020225, end: 20020513
  41. PATANOL [Concomitant]
     Route: 047
  42. PHENAZOPYRIDINE HYDROCHLORIDE [Concomitant]
     Route: 065
  43. PLAVIX [Concomitant]
     Indication: PROPHYLAXIS
     Route: 065
     Dates: start: 20030213, end: 20030315
  44. POTASSIUM (UNSPECIFIED) [Concomitant]
     Indication: HYPOKALAEMIA
     Route: 065
  45. PREDNISONE [Concomitant]
     Indication: INFLAMMATION
     Route: 065
  46. PREDNISONE [Concomitant]
     Indication: HYPERSENSITIVITY
     Route: 065
  47. VIOXX [Suspect]
     Indication: BACK PAIN
     Route: 048
     Dates: start: 19991229, end: 20040123
  48. VIOXX [Suspect]
     Route: 048
     Dates: start: 19991229, end: 20040123
  49. ALDACTAZIDE [Concomitant]
     Indication: HYPERTENSION
     Route: 065
     Dates: start: 19990326, end: 20020406
  50. ALLEGRA [Concomitant]
     Indication: HYPERSENSITIVITY
     Route: 065
  51. AMOXAPINE [Concomitant]
     Indication: DEPRESSION
     Route: 065
     Dates: start: 19990201, end: 20050114
  52. ASPIRIN [Concomitant]
     Route: 048
     Dates: start: 20020101
  53. ATENOLOL [Concomitant]
     Indication: HYPERTENSION
     Route: 048
     Dates: start: 19981124, end: 20050101
  54. AVAPRO [Concomitant]
     Indication: HYPERTENSION
     Route: 065
     Dates: start: 20020719, end: 20021017
  55. AVELOX [Concomitant]
     Route: 065

REACTIONS (33)
  - ABDOMINAL DISTENSION [None]
  - ANAEMIA [None]
  - ANGINA UNSTABLE [None]
  - ARTHRALGIA [None]
  - BLOOD CHOLESTEROL INCREASED [None]
  - CARDIAC FAILURE CONGESTIVE [None]
  - CARDIOMYOPATHY [None]
  - CHRONIC OBSTRUCTIVE PULMONARY DISEASE [None]
  - CHRONIC SINUSITIS [None]
  - COLITIS ISCHAEMIC [None]
  - CONFUSIONAL STATE [None]
  - CORONARY ARTERY DISEASE [None]
  - COUGH [None]
  - DISORIENTATION [None]
  - DIZZINESS [None]
  - DYSPNOEA [None]
  - DYSPNOEA EXACERBATED [None]
  - FATIGUE [None]
  - HYPERCHOLESTEROLAEMIA [None]
  - HYPERLIPIDAEMIA [None]
  - HYPOKALAEMIA [None]
  - HYPOMAGNESAEMIA [None]
  - HYPONATRAEMIA [None]
  - MITRAL VALVE INCOMPETENCE [None]
  - MUSCLE STRAIN [None]
  - MYOCARDIAL INFARCTION [None]
  - OEDEMA PERIPHERAL [None]
  - PAIN IN EXTREMITY [None]
  - PALPITATIONS [None]
  - PULMONARY OEDEMA [None]
  - SHOULDER PAIN [None]
  - SPONDYLOLISTHESIS [None]
  - TRICUSPID VALVE INCOMPETENCE [None]
